FAERS Safety Report 7328892-7 (Version None)
Quarter: 2011Q1

REPORT INFORMATION
  Report Type: 
  Country: None (occurrence: None)
  Receive Date: 20110303
  Receipt Date: 20110225
  Transmission Date: 20110831
  Serious: Yes (Hospitalization, Other)
  Sender: FDA-Public Use
  Company Number: US-ROCHE-762492

PATIENT
  Age: 46 Year
  Sex: Female
  Weight: 135.7 kg

DRUGS (11)
  1. VALIUM [Concomitant]
  2. METOPROLOL [Concomitant]
  3. INSULIN [Concomitant]
  4. NEURONTIN [Concomitant]
  5. NITROGLYCERIN [Concomitant]
  6. TAMIFLU [Suspect]
     Indication: H1N1 INFLUENZA
     Route: 065
     Dates: start: 20091002, end: 20091003
  7. CLONIDINE [Concomitant]
  8. PLAVIX [Concomitant]
  9. CELEXA [Concomitant]
  10. METHYLPREDNISOLONE [Concomitant]
     Dates: start: 20091002
  11. XANAX [Concomitant]

REACTIONS (3)
  - DYSPHAGIA [None]
  - ANGIOEDEMA [None]
  - DIALYSIS [None]
